FAERS Safety Report 15691528 (Version 1)
Quarter: 2018Q4

REPORT INFORMATION
  Report Type: Spontaneous
  Country: ES (occurrence: ES)
  Receive Date: 20181205
  Receipt Date: 20181205
  Transmission Date: 20190205
  Serious: Yes (Death, Other)
  Sender: FDA-Public Use
  Company Number: ES-BAYER-2018-224710

PATIENT
  Age: 67 Year
  Sex: Female
  Weight: 59 kg

DRUGS (6)
  1. STIVARGA [Suspect]
     Active Substance: REGORAFENIB
     Indication: ADENOCARCINOMA OF COLON
     Dosage: 160 MG/DAY
     Dates: start: 20160411, end: 20160720
  2. FLUOXETINE [Concomitant]
     Active Substance: FLUOXETINE HYDROCHLORIDE
     Indication: ANXIETY
     Dosage: 20 MG/DAY
  3. MITOMYCIN C [Concomitant]
     Active Substance: MITOMYCIN
     Dosage: UNK
     Dates: start: 20160622
  4. CAPECITABINE. [Concomitant]
     Active Substance: CAPECITABINE
     Dosage: UNK
     Dates: start: 20160622
  5. LORAZEPAM. [Concomitant]
     Active Substance: LORAZEPAM
     Indication: ANXIETY
     Dosage: 1 MG/DAY
  6. IRBESARTAN. [Concomitant]
     Active Substance: IRBESARTAN
     Indication: HYPERTENSION
     Dosage: 150 MG/DAY

REACTIONS (8)
  - Death [Fatal]
  - Metastases to liver [None]
  - Metastases to retroperitoneum [None]
  - Palmar-plantar erythrodysaesthesia syndrome [None]
  - Abdominal pain upper [None]
  - Hepatic encephalopathy [None]
  - Colon cancer metastatic [None]
  - Metastases to lung [None]

NARRATIVE: CASE EVENT DATE: 20160917
